FAERS Safety Report 5255499-8 (Version None)
Quarter: 2007Q1

REPORT INFORMATION
  Report Type: 
  Country: None (occurrence: None)
  Receive Date: 20070228
  Receipt Date: 20070215
  Transmission Date: 20070707
  Serious: Yes (Other)
  Sender: FDA-Public Use
  Company Number: 2007RL000065

PATIENT
  Age: 59 Year
  Sex: Male

DRUGS (5)
  1. OMACOR [Suspect]
     Indication: DRUG USE FOR UNKNOWN INDICATION
     Dosage: PO
     Route: 048
     Dates: start: 20061101, end: 20061201
  2. ANAFRANIL [Concomitant]
  3. LITHIUM CARBONATE [Concomitant]
  4. PROCHLORPERAZINE [Concomitant]
  5. RIZATRIPTAN BENZOATE [Concomitant]

REACTIONS (2)
  - BIPOLAR DISORDER [None]
  - CONDITION AGGRAVATED [None]
